FAERS Safety Report 22031539 (Version 2)
Quarter: 2023Q4

REPORT INFORMATION
  Report Type: Spontaneous
  Country: SE (occurrence: SE)
  Receive Date: 20230224
  Receipt Date: 20231110
  Transmission Date: 20240110
  Serious: Yes (Other)
  Sender: FDA-Public Use
  Company Number: SE-CELLTRION INC.-2023SE003793

PATIENT

DRUGS (5)
  1. INFLIXIMAB [Suspect]
     Active Substance: INFLIXIMAB
     Indication: Crohn^s disease
     Dosage: 10.2 MG, EVERY 7 WEEKS
     Route: 042
     Dates: start: 20211122, end: 20221115
  2. INFLIXIMAB [Suspect]
     Active Substance: INFLIXIMAB
     Dosage: 10.2 MG, EVERY 7 WEEKS
     Route: 042
     Dates: start: 20211122, end: 20221115
  3. INFLIXIMAB [Suspect]
     Active Substance: INFLIXIMAB
     Dosage: 10.2 MG, EVERY 7 WEEKS
     Route: 042
     Dates: start: 20211122, end: 20221115
  4. INFLIXIMAB [Suspect]
     Active Substance: INFLIXIMAB
     Dosage: 10.2 MG, EVERY 7 WEEKS
     Route: 042
     Dates: start: 20211122, end: 20221115
  5. AZATHIOPRINE [Concomitant]
     Active Substance: AZATHIOPRINE
     Dosage: 50 MG 1X1
     Route: 048
     Dates: start: 20211216, end: 20221115

REACTIONS (2)
  - Rash pustular [Recovering/Resolving]
  - Intentional product use issue [Unknown]

NARRATIVE: CASE EVENT DATE: 20221103
